FAERS Safety Report 5772903-7 (Version None)
Quarter: 2008Q2

REPORT INFORMATION
  Report Type: 
  Country: None (occurrence: None)
  Receive Date: 20080613
  Receipt Date: 20080602
  Transmission Date: 20081010
  Serious: Yes (Hospitalization)
  Sender: FDA-Public Use
  Company Number: BR-PFIZER INC-2008047129

PATIENT
  Sex: Female

DRUGS (8)
  1. AROMASIN [Suspect]
     Indication: OFF LABEL USE
     Route: 048
  2. AROMASIN [Suspect]
     Indication: LUNG NEOPLASM MALIGNANT
  3. AMITRIPTYLINE HCL [Suspect]
     Route: 048
  4. CLONAZEPAM [Suspect]
     Route: 048
  5. MIRTAZAPINE [Suspect]
     Route: 048
  6. RISPERIDONE [Suspect]
     Route: 048
  7. ATLANSIL ^ROEMMERS^ [Concomitant]
     Route: 065
  8. METFORMIN [Concomitant]
     Dates: end: 20080501

REACTIONS (2)
  - COMA [None]
  - SUICIDE ATTEMPT [None]
